FAERS Safety Report 5015676-8 (Version None)
Quarter: 2006Q2

REPORT INFORMATION
  Report Type: 
  Country: None (occurrence: None)
  Receive Date: 20060601
  Receipt Date: 20060517
  Transmission Date: 20061013
  Serious: Yes (Hospitalization)
  Sender: FDA-Public Use
  Company Number: AR-GLAXOSMITHKLINE-B0425053A

PATIENT
  Age: 66 Year
  Sex: Female

DRUGS (7)
  1. REMIFENTANIL [Suspect]
     Dosage: 5.7UGK SEE DOSAGE TEXT
     Route: 050
  2. TRANYLCYPROMINE [Suspect]
     Indication: DRUG USE FOR UNKNOWN INDICATION
     Dosage: 100MG UNKNOWN
     Route: 065
  3. TRIFLUOPERAZINE HYDROCHLORIDE [Suspect]
     Indication: DRUG USE FOR UNKNOWN INDICATION
     Dosage: 20MG UNKNOWN
     Route: 065
  4. LORAZEPAM [Suspect]
     Indication: DRUG USE FOR UNKNOWN INDICATION
     Dosage: 10MG UNKNOWN
     Route: 065
  5. FLUOXETINE [Suspect]
     Indication: DRUG USE FOR UNKNOWN INDICATION
     Dosage: 60MG UNKNOWN
     Route: 065
  6. MIDAZOLAM HCL [Concomitant]
     Indication: DRUG USE FOR UNKNOWN INDICATION
     Dosage: 15MG UNKNOWN
     Route: 065
  7. PANCURONIUM BROMIDE [Concomitant]
     Indication: DRUG USE FOR UNKNOWN INDICATION
     Dosage: 4MG UNKNOWN
     Route: 065

REACTIONS (14)
  - AGITATION [None]
  - COMA [None]
  - DRUG INTERACTION [None]
  - EYE MOVEMENT DISORDER [None]
  - HYPERHIDROSIS [None]
  - HYPERREFLEXIA [None]
  - HYPERTONIA [None]
  - INTENTIONAL OVERDOSE [None]
  - MUSCLE RIGIDITY [None]
  - MYOCLONUS [None]
  - OXYGEN SATURATION DECREASED [None]
  - PUPILLARY REFLEX IMPAIRED [None]
  - SEROTONIN SYNDROME [None]
  - UNRESPONSIVE TO PAIN STIMULI [None]
